FAERS Safety Report 9992738 (Version 3)
Quarter: 2014Q2

REPORT INFORMATION
  Report Type: Report from Study
  Country: PL (occurrence: PL)
  Receive Date: 20140310
  Receipt Date: 20140409
  Transmission Date: 20141212
  Serious: Yes (Hospitalization, Other)
  Sender: FDA-Public Use
  Company Number: PL-BRISTOL-MYERS SQUIBB COMPANY-20099289

PATIENT
  Age: 56 Year
  Sex: Male

DRUGS (4)
  1. BLINDED: IPILIMUMAB [Suspect]
     Indication: SMALL CELL LUNG CANCER
     Dosage: 1DF: 110 UNITS NOS
     Route: 042
     Dates: start: 20131212, end: 20140124
  2. CISPLATIN [Suspect]
     Indication: SMALL CELL LUNG CANCER
     Dosage: 1DF: 121 UNITS NOS
     Route: 042
     Dates: start: 20131004, end: 20131210
  3. ETOPOSIDE [Suspect]
     Indication: SMALL CELL LUNG CANCER
     Dosage: 1DF:162 UNITS NOS
     Route: 042
     Dates: start: 20131004, end: 20131212
  4. BLINDED: PLACEBO [Suspect]
     Indication: SMALL CELL LUNG CANCER
     Route: 042
     Dates: start: 20131212, end: 20140124

REACTIONS (2)
  - Hyponatraemia [Recovered/Resolved]
  - Oral candidiasis [Recovered/Resolved]
